FAERS Safety Report 8328022-9 (Version None)
Quarter: 2012Q2

REPORT INFORMATION
  Report Type: 
  Country: None (occurrence: None)
  Receive Date: 20120502
  Receipt Date: 20120423
  Transmission Date: 20120825
  Serious: Yes (Other)
  Sender: FDA-Public Use
  Company Number: US-BRISTOL-MYERS SQUIBB COMPANY-16542375

PATIENT
  Sex: Female

DRUGS (1)
  1. SPRYCEL [Suspect]
     Indication: LEUKAEMIA
     Dosage: 5 PILLS

REACTIONS (4)
  - DEHYDRATION [None]
  - HYPOTENSION [None]
  - BLOOD GLUCOSE DECREASED [None]
  - PARAESTHESIA ORAL [None]
